FAERS Safety Report 20890212 (Version 1)
Quarter: 2022Q2

REPORT INFORMATION
  Report Type: Spontaneous
  Country: CN (occurrence: CN)
  Receive Date: 20220530
  Receipt Date: 20220530
  Transmission Date: 20220720
  Serious: Yes (Life-Threatening, Hospitalization)
  Sender: FDA-Public Use
  Company Number: CN-STRIDES ARCOLAB LIMITED-2022SP006185

PATIENT
  Age: 21 Year
  Sex: Female

DRUGS (6)
  1. ZOLPIDEM [Suspect]
     Active Substance: ZOLPIDEM TARTRATE
     Indication: Depression
     Dosage: UNK
     Route: 048
  2. ZOLPIDEM [Suspect]
     Active Substance: ZOLPIDEM TARTRATE
     Dosage: 200 MILLIGRAM (INGESTED 20 TABLETS AFTER MENTAL STIMULATION) (TABLET)
     Route: 048
  3. LEVOTHYROXINE SODIUM [Suspect]
     Active Substance: LEVOTHYROXINE SODIUM
     Indication: Hypothyroidism
     Dosage: UNK (12.5-25.0 MICROG/DAY)
     Route: 048
  4. LEVOTHYROXINE SODIUM [Suspect]
     Active Substance: LEVOTHYROXINE SODIUM
     Dosage: 200 DOSAGE FORM (INGESTED 200 TABLETS (~10MG) AFTER MENTAL STIMULATION)
     Route: 048
  5. CLONAZEPAM [Suspect]
     Active Substance: CLONAZEPAM
     Indication: Depression
     Dosage: UNK
     Route: 048
  6. CLONAZEPAM [Suspect]
     Active Substance: CLONAZEPAM
     Dosage: 20 MILLIGRAM (INGESTED MORE THAN 10 TABLETS AFTER MENTAL STIMULATION)
     Route: 048

REACTIONS (3)
  - Intentional product misuse [Unknown]
  - Intentional overdose [Unknown]
  - Off label use [Unknown]
